FAERS Safety Report 21340385 (Version 1)
Quarter: 2022Q3

REPORT INFORMATION
  Report Type: Spontaneous
  Country: US (occurrence: US)
  Receive Date: 20220916
  Receipt Date: 20220916
  Transmission Date: 20221027
  Serious: No
  Sender: FDA-Public Use
  Company Number: US-BRISTOL-MYERS SQUIBB COMPANY-2022-101000

PATIENT
  Age: 72 Year
  Sex: Male
  Weight: 85.28 kg

DRUGS (1)
  1. REVLIMID [Suspect]
     Active Substance: LENALIDOMIDE
     Indication: Myelodysplastic syndrome
     Dosage: FREQ: DAY 1-28 Q 28 DAYS
     Route: 048
     Dates: start: 20211221

REACTIONS (5)
  - Nervous system disorder [Unknown]
  - Vertigo [Unknown]
  - Full blood count abnormal [Unknown]
  - Red blood cell abnormality [Unknown]
  - Platelet disorder [Unknown]
